FAERS Safety Report 9520281 (Version 1)
Quarter: 2013Q3

REPORT INFORMATION
  Report Type: Spontaneous
  Country: GB (occurrence: GB)
  Receive Date: 20130912
  Receipt Date: 20130912
  Transmission Date: 20140515
  Serious: Yes (Hospitalization)
  Sender: FDA-Public Use
  Company Number: GB-B.I. PHARMACEUTICALS,INC./RIDGEFIELD-2013-BI-27846UK

PATIENT
  Age: 82 Year
  Sex: Male

DRUGS (11)
  1. LINAGLIPTIN [Suspect]
     Route: 048
  2. ABIDEC [Concomitant]
     Dosage: DOSE PER APPLICATION: 0.6 ML
  3. ALENDRONIC ACID [Concomitant]
  4. ASPIRIN [Concomitant]
  5. BISOPROLOL [Concomitant]
  6. FLUOXETINE [Concomitant]
  7. GALFER [Concomitant]
     Dosage: STRENGTH: 10ML
  8. LACTULOSE [Concomitant]
     Dosage: DOSE PER APPLICATION: 15ML
  9. LANSOPRAZOLE [Concomitant]
  10. MEMANTINE [Concomitant]
  11. PARACETAMOL [Concomitant]

REACTIONS (1)
  - Liver function test abnormal [Not Recovered/Not Resolved]
